FAERS Safety Report 15632107 (Version 2)
Quarter: 2018Q4

REPORT INFORMATION
  Report Type: Report from Study
  Country: SG (occurrence: SG)
  Receive Date: 20181119
  Receipt Date: 20181123
  Transmission Date: 20190205
  Serious: Yes (Hospitalization, Other)
  Sender: FDA-Public Use
  Company Number: SG-BRISTOL-MYERS SQUIBB COMPANY-BMS-2018-106720

PATIENT
  Age: 59 Year
  Sex: Male
  Weight: 52.5 kg

DRUGS (2)
  1. BLINDED NIVOLUMAB [Suspect]
     Active Substance: NIVOLUMAB
     Indication: OESOPHAGEAL CARCINOMA
     Dosage: 240 MG, UNK
     Route: 042
     Dates: start: 20180918, end: 20181030
  2. BLINDED PLACEBO [Suspect]
     Active Substance: INVESTIGATIONAL PRODUCT
     Indication: OESOPHAGEAL CARCINOMA
     Dosage: 240 MG, UNK
     Route: 042
     Dates: start: 20180918, end: 20181030

REACTIONS (2)
  - Pyrexia [Recovering/Resolving]
  - Pneumonia [Recovered/Resolved]

NARRATIVE: CASE EVENT DATE: 20181113
